FAERS Safety Report 7625701-3 (Version None)
Quarter: 2011Q3

REPORT INFORMATION
  Report Type: 
  Country: None (occurrence: None)
  Receive Date: 20110713
  Receipt Date: 20110629
  Transmission Date: 20111222
  Serious: Yes (Life-Threatening, Hospitalization)
  Sender: FDA-Public Use
  Company Number: 2011JP005718

PATIENT
  Age: 51 Year
  Sex: Female

DRUGS (6)
  1. CISPLATIN [Suspect]
     Dosage: IV DRIP
     Route: 041
     Dates: start: 20110624
  2. DECADRON [Suspect]
     Dates: start: 20110624
  3. EMEND [Suspect]
     Dosage: ORAL
     Route: 048
     Dates: start: 20110624
  4. DEXAMETHASONE SODIUM PHOSPHATE [Suspect]
     Dosage: INTRAVENOUS
     Route: 042
  5. ALOXI [Suspect]
     Indication: PROPHYLAXIS OF NAUSEA AND VOMITING
     Dosage: 0.75 MG, SINGLE, INTRAVENOUS
     Route: 042
     Dates: start: 20110624, end: 20110624
  6. ANCER (EXTRACT OF MYCOBACTERIUM TUBERCULOSIS) [Suspect]
     Dosage: SUBCUTANEOUS
     Route: 058
     Dates: start: 20110627, end: 20110627

REACTIONS (1)
  - ANAPHYLACTIC SHOCK [None]
